FAERS Safety Report 8555874 (Version 2)
Quarter: 2013Q1

REPORT INFORMATION
  Report Type: Report from Study
  Country: US (occurrence: US)
  Receive Date: 20120510
  Receipt Date: 20130314
  Transmission Date: 20140127
  Serious: Yes (Other)
  Sender: FDA-Public Use
  Company Number: US-ROCHE-1066453

PATIENT
  Age: 51 Year
  Sex: Female

DRUGS (10)
  1. ALISPORIVIR [Suspect]
     Indication: HEPATITIS C
     Route: 048
     Dates: start: 20110919, end: 20111003
  2. PEG-INTERFERON ALFA 2A [Suspect]
     Indication: HEPATITIS C
     Route: 058
     Dates: start: 20110919, end: 20111001
  3. PEG-INTERFERON ALFA 2A [Suspect]
     Route: 058
     Dates: start: 20111031
  4. RIBAVIRIN [Suspect]
     Indication: HEPATITIS C
     Route: 048
     Dates: start: 20110919, end: 20111003
  5. RIBAVIRIN [Suspect]
     Route: 048
     Dates: start: 20111031
  6. PARACETAMOL [Suspect]
     Indication: HEPATITIS C
     Route: 065
     Dates: start: 20111015, end: 20111015
  7. IBUPROFEN [Concomitant]
     Route: 065
     Dates: start: 20110930, end: 20110930
  8. AMBIEN [Concomitant]
     Route: 065
     Dates: start: 20110921, end: 20111012
  9. PEPCID [Concomitant]
     Route: 065
     Dates: start: 20111017, end: 20111017
  10. XENADERM [Concomitant]
     Route: 065

REACTIONS (3)
  - Hepatosplenomegaly [Recovered/Resolved]
  - Thrombocytopenia [Recovered/Resolved]
  - Disease progression [Unknown]
